FAERS Safety Report 8563525-3 (Version None)
Quarter: 2012Q3

REPORT INFORMATION
  Report Type: 
  Country: None (occurrence: None)
  Receive Date: 20120802
  Receipt Date: 20120725
  Transmission Date: 20120928
  Serious: Yes (Other)
  Sender: FDA-Public Use
  Company Number: GB-UCBSA-062668

PATIENT
  Age: 76 Year
  Sex: Male

DRUGS (2)
  1. KEPPRA [Suspect]
  2. VIMPAT [Suspect]
     Indication: EPILEPSY
     Dates: start: 20110101

REACTIONS (1)
  - ARRHYTHMIA [None]
